FAERS Safety Report 12411846 (Version 4)
Quarter: 2018Q2

REPORT INFORMATION
  Report Type: Spontaneous
  Country: US (occurrence: US)
  Receive Date: 20160527
  Receipt Date: 20180403
  Transmission Date: 20180711
  Serious: Yes (Hospitalization, Other)
  Sender: FDA-Public Use
  Company Number: US-OTSUKA-2016_011316

PATIENT
  Age: 82 Year
  Sex: Male
  Weight: 76.7 kg

DRUGS (25)
  1. MAGNESIUM SULFATE. [Concomitant]
     Active Substance: MAGNESIUM SULFATE
     Dosage: 2 G, 1 IN 1 DAY
     Route: 042
     Dates: start: 20160310
  2. HYDROCORTISONE. [Concomitant]
     Active Substance: HYDROCORTISONE
     Indication: OEDEMA PERIPHERAL
     Dosage: 1 %, IN 1 AS NECESSARY
     Route: 061
     Dates: start: 20160330
  3. PHENYLEPHRINE [Concomitant]
     Active Substance: PHENYLEPHRINE\PHENYLEPHRINE HYDROCHLORIDE
     Indication: HAEMORRHOIDS
     Dosage: , IN 1 AS NECESSARY
     Route: 054
     Dates: start: 20160330
  4. VENETOCLAX. [Suspect]
     Active Substance: VENETOCLAX
     Indication: MYELOID LEUKAEMIA
     Dosage: 100 MG, 1 IN 1 DAY
     Route: 048
     Dates: start: 20160308
  5. TAMSULOSIN [Concomitant]
     Active Substance: TAMSULOSIN
     Indication: POLLAKIURIA
     Dosage: 0.4 MG, 1 IN 1 DAY
     Route: 048
     Dates: start: 20160321, end: 20160926
  6. DECITABINE. [Suspect]
     Active Substance: DECITABINE
     Indication: MYELOID LEUKAEMIA
     Dosage: 20 MG/M2, DAY 1 TO 5 OF 28 DAY CYCLE
     Route: 042
     Dates: start: 20160308, end: 20160408
  7. VENETOCLAX. [Suspect]
     Active Substance: VENETOCLAX
     Dosage: 800 MG, 1 IN 1 DAY
     Route: 048
     Dates: start: 20160311, end: 20160414
  8. MELATONIN [Concomitant]
     Active Substance: MELATONIN
     Indication: INSOMNIA
     Dosage: 5 MG, QD
     Route: 048
     Dates: start: 201603
  9. MAGNESIUM SULFATE. [Concomitant]
     Active Substance: MAGNESIUM SULFATE
     Dosage: 3 G, 1 IN 1 DAY
     Route: 042
     Dates: start: 20160312
  10. MAGNESIUM [Concomitant]
     Active Substance: MAGNESIUM
     Indication: HYPOMAGNESAEMIA
     Dosage: 400 MG, 2 IN 1 DAY
     Route: 048
     Dates: start: 20160404, end: 20160504
  11. TAMSULOSIN [Concomitant]
     Active Substance: TAMSULOSIN
     Indication: BENIGN PROSTATIC HYPERPLASIA
     Dosage: 0.4 MG, 1 IN 1 DAY
     Route: 048
     Dates: start: 20160301
  12. DECITABINE. [Suspect]
     Active Substance: DECITABINE
     Dosage: 20 MG/M2, UNK
     Route: 065
     Dates: start: 20160523
  13. VENETOCLAX. [Suspect]
     Active Substance: VENETOCLAX
     Dosage: 200 MG, 1 IN 1 DAY
     Route: 048
     Dates: start: 20160309
  14. VENETOCLAX. [Suspect]
     Active Substance: VENETOCLAX
     Dosage: 400 MG, 1 IN 1 DAY
     Route: 048
     Dates: start: 20160310
  15. VENETOCLAX. [Suspect]
     Active Substance: VENETOCLAX
     Dosage: 800 MG, 1 IN 1 DAY
     Route: 048
  16. ALBUTEROL. [Concomitant]
     Active Substance: ALBUTEROL
     Indication: WHEEZING
     Dosage: UNK, IN 1 AS NECESSARY
     Route: 065
     Dates: start: 2008
  17. POLYETHYLENE GLYCOL [Concomitant]
     Active Substance: POLYETHYLENE GLYCOLS
     Indication: CONSTIPATION
     Dosage: 17 G, 1 IN 1 DAY
     Route: 048
     Dates: start: 201602
  18. OXYCODONE [Concomitant]
     Active Substance: OXYCODONE
     Indication: ARTHRALGIA
     Dosage: 5 MG, 1 IN 6 HOUR
     Route: 048
     Dates: start: 20160314, end: 20160919
  19. TAMSULOSIN [Concomitant]
     Active Substance: TAMSULOSIN
     Indication: NOCTURIA
  20. MAGNESIUM SULFATE. [Concomitant]
     Active Substance: MAGNESIUM SULFATE
     Indication: HYPOMAGNESAEMIA
     Dosage: 2 G, 1 IN 1 DAY
     Dates: start: 20160303
  21. MAGNESIUM SULFATE. [Concomitant]
     Active Substance: MAGNESIUM SULFATE
     Dosage: 2 G, 1 IN 1 DAY
     Route: 042
     Dates: start: 20160314
  22. CIPROFLOXACIN. [Concomitant]
     Active Substance: CIPROFLOXACIN
     Indication: URINARY TRACT INFECTION
     Dosage: 1000 MG, 2 IN 1 DAY
     Route: 048
     Dates: start: 20160325
  23. KETOCONAZOLE. [Concomitant]
     Active Substance: KETOCONAZOLE
     Indication: PRODUCT USED FOR UNKNOWN INDICATION
     Dosage: 2 %, 1 IN 1 DAY
     Route: 061
     Dates: start: 20160321
  24. HYDROCORTISONE. [Concomitant]
     Active Substance: HYDROCORTISONE
     Indication: HAEMORRHOIDS
     Dosage: , IN 1 AS NECESSARY
     Route: 054
     Dates: start: 20160324
  25. MAGNESIUM SULFATE. [Concomitant]
     Active Substance: MAGNESIUM SULFATE
     Dosage: 2 G, 1 IN 1 DAY
     Route: 042
     Dates: start: 20160308

REACTIONS (14)
  - Urosepsis [Recovered/Resolved]
  - Delirium [Unknown]
  - Vision blurred [Unknown]
  - Neutropenia [Unknown]
  - Pancytopenia [Unknown]
  - Anaemia [Unknown]
  - International normalised ratio increased [Unknown]
  - Hypertension [Unknown]
  - Bundle branch block left [Unknown]
  - Febrile neutropenia [Unknown]
  - Hypocalcaemia [Unknown]
  - Hypoalbuminaemia [Unknown]
  - Insomnia [Unknown]
  - Urinary tract infection [Not Recovered/Not Resolved]

NARRATIVE: CASE EVENT DATE: 201603
